FAERS Safety Report 9707776 (Version 1)
Quarter: 2013Q4

REPORT INFORMATION
  Report Type: Spontaneous
  Country: US (occurrence: US)
  Receive Date: 20131125
  Receipt Date: 20131125
  Transmission Date: 20140711
  Serious: Yes (Hospitalization, Other)
  Sender: FDA-Public Use
  Company Number: US-ASTELLAS-2013US012088

PATIENT
  Age: 45 Year
  Sex: Male
  Weight: 86 kg

DRUGS (2)
  1. PROGRAF [Suspect]
     Indication: RENAL TRANSPLANT
     Dosage: 2 MG, BID
     Route: 048
     Dates: end: 20130909
  2. PROGRAF [Suspect]
     Indication: PANCREAS TRANSPLANT

REACTIONS (3)
  - Drug ineffective for unapproved indication [Unknown]
  - Hospitalisation [Unknown]
  - Pancreas transplant rejection [Unknown]
